FAERS Safety Report 7068233-6 (Version None)
Quarter: 2010Q4

REPORT INFORMATION
  Report Type: 
  Country: None (occurrence: None)
  Receive Date: 20101028
  Receipt Date: 20101018
  Transmission Date: 20110411
  Serious: Yes (Other)
  Sender: FDA-Public Use
  Company Number: IE-ROCHE-732456

PATIENT
  Sex: Male

DRUGS (1)
  1. MIRCERA [Suspect]
     Dosage: FREQUENCY: FORTNIGHTLY
     Route: 065

REACTIONS (2)
  - DISEASE PROGRESSION [None]
  - DRUG INEFFECTIVE [None]
